FAERS Safety Report 15437681 (Version 1)
Quarter: 2018Q3

REPORT INFORMATION
  Report Type: Spontaneous
  Country: US (occurrence: US)
  Receive Date: 20180927
  Receipt Date: 20180927
  Transmission Date: 20181010
  Serious: Yes (Other)
  Sender: FDA-Public Use
  Company Number: PHHY2018US103286

PATIENT
  Age: 71 Year
  Sex: Male

DRUGS (2)
  1. IMATINIB [Suspect]
     Active Substance: IMATINIB
     Indication: MYELOPROLIFERATIVE NEOPLASM
     Dosage: 400 MG, QD
     Route: 065
  2. IMATINIB [Suspect]
     Active Substance: IMATINIB
     Dosage: 100 MG, (3 DAYS A WEEK)
     Route: 065

REACTIONS (3)
  - Acute myeloid leukaemia [Unknown]
  - Disease recurrence [Unknown]
  - Drug resistance [Unknown]
